FAERS Safety Report 17528117 (Version 3)
Quarter: 2020Q2

REPORT INFORMATION
  Report Type: Spontaneous
  Country: FR (occurrence: FR)
  Receive Date: 20200311
  Receipt Date: 20200402
  Transmission Date: 20200713
  Serious: Yes (Life-Threatening, Other)
  Sender: FDA-Public Use
  Company Number: FR-ACELRX PHARMACEUTICALS, INC-ACEL20200021

PATIENT
  Age: 49 Year
  Sex: Female

DRUGS (2)
  1. ZALVISO [Suspect]
     Active Substance: SUFENTANIL CITRATE
     Indication: PROCEDURAL PAIN
     Dosage: ONE TABLET, (MORE THAN 20 MINUTES BETWEEN INTAKES); 11 TOTAL DOSES
     Route: 060
     Dates: start: 20200225, end: 20200225
  2. ZALVISO [Suspect]
     Active Substance: SUFENTANIL CITRATE
     Indication: PROCEDURAL PAIN

REACTIONS (2)
  - Hypercapnia [Recovered/Resolved]
  - Altered state of consciousness [Recovered/Resolved]

NARRATIVE: CASE EVENT DATE: 20200225
